FAERS Safety Report 4427501-4 (Version None)
Quarter: 2004Q3

REPORT INFORMATION
  Report Type: 
  Country: None (occurrence: None)
  Receive Date: 20040817
  Receipt Date: 20040810
  Transmission Date: 20050211
  Serious: Yes (Hospitalization)
  Sender: FDA-Public Use
  Company Number: FR-MERCK-0408FRA00020

PATIENT
  Age: 52 Year
  Sex: Male

DRUGS (5)
  1. CELECOXIB [Suspect]
     Indication: ANKYLOSING SPONDYLITIS
     Route: 048
  2. INTERFERON ALFA-2A [Suspect]
     Indication: HEPATITIS C
     Route: 065
  3. COZAAR [Suspect]
     Indication: HYPERTENSION
     Route: 048
  4. RIBAVIRIN [Suspect]
     Indication: HEPATITIS C
     Route: 065
  5. TRAMADOL HYDROCHLORIDE [Suspect]
     Indication: ANKYLOSING SPONDYLITIS
     Route: 048

REACTIONS (9)
  - ANXIETY [None]
  - BLOOD PRESSURE INCREASED [None]
  - DYSPNOEA [None]
  - EMOTIONAL DISORDER [None]
  - HAEMOGLOBIN DECREASED [None]
  - HEART RATE INCREASED [None]
  - PCO2 DECREASED [None]
  - SUICIDAL IDEATION [None]
  - WHITE BLOOD CELL COUNT DECREASED [None]
